FAERS Safety Report 8477807-7 (Version None)
Quarter: 2012Q2

REPORT INFORMATION
  Report Type: 
  Country: None (occurrence: None)
  Receive Date: 20120621
  Receipt Date: 20120611
  Transmission Date: 20120825
  Serious: Yes (Other)
  Sender: FDA-Public Use
  Company Number: 2012SP031679

PATIENT
  Age: 49 Year
  Sex: Male
  Weight: 86.1834 kg

DRUGS (1)
  1. SAPHRIS [Suspect]
     Indication: DEPRESSION
     Dosage: 5 MG;QD;SL
     Route: 060
     Dates: start: 20120217

REACTIONS (8)
  - FEELING ABNORMAL [None]
  - OFF LABEL USE [None]
  - FEELING COLD [None]
  - DYSPHEMIA [None]
  - CONTUSION [None]
  - FEELING HOT [None]
  - DYSARTHRIA [None]
  - HEADACHE [None]
